FAERS Safety Report 6642841-6 (Version None)
Quarter: 2010Q1

REPORT INFORMATION
  Report Type: 
  Country: None (occurrence: None)
  Receive Date: 20100319
  Receipt Date: 20100316
  Transmission Date: 20100710
  Serious: Yes (Hospitalization, Other)
  Sender: FDA-Public Use
  Company Number: US-ELI_LILLY_AND_COMPANY-US201002004263

PATIENT
  Sex: Male

DRUGS (17)
  1. HUMALOG [Suspect]
     Indication: DIABETES MELLITUS
     Dosage: UNK, AS NEEDED
     Dates: start: 20090801
  2. HUMALOG [Suspect]
     Dosage: UNK, AS NEEDED
     Dates: start: 20090801
  3. HUMALOG [Suspect]
     Dosage: UNK, AS NEEDED
     Dates: start: 20000101, end: 20090801
  4. ALBETOL [Concomitant]
  5. SULFAMETHOXAZOLE AND TRIMETHOPRIM [Concomitant]
     Indication: CYSTITIS
  6. MAGNESIUM [Concomitant]
  7. STOOL SOFTENER [Concomitant]
  8. SENSIPAR [Concomitant]
     Indication: PARATHYROID DISORDER
  9. OXYCODONE [Concomitant]
     Indication: PAIN
  10. OXYCONTIN [Concomitant]
     Indication: PAIN
  11. LANTUS [Concomitant]
  12. PROCRIT [Concomitant]
  13. EPOGEN [Concomitant]
  14. PROGRAF [Concomitant]
  15. MYFORTIC [Concomitant]
  16. VITAMINS [Concomitant]
  17. NOVOLOG [Concomitant]

REACTIONS (13)
  - ALTERED VISUAL DEPTH PERCEPTION [None]
  - BLINDNESS [None]
  - COUGH [None]
  - DIABETIC RETINOPATHY [None]
  - DYSPHONIA [None]
  - EYE HAEMORRHAGE [None]
  - HOSPITALISATION [None]
  - INJECTION SITE HAEMORRHAGE [None]
  - NASAL CONGESTION [None]
  - NASOPHARYNGITIS [None]
  - RENAL TRANSPLANT [None]
  - RETINAL DETACHMENT [None]
  - VISUAL FIELD DEFECT [None]
